APPROVED DRUG PRODUCT: ACEON
Active Ingredient: PERINDOPRIL ERBUMINE
Strength: 2MG
Dosage Form/Route: TABLET;ORAL
Application: N020184 | Product #001
Applicant: SYMPLMED PHARMACEUTICALS LLC
Approved: Dec 30, 1993 | RLD: Yes | RS: No | Type: DISCN